FAERS Safety Report 10236691 (Version 1)
Quarter: 2014Q2

REPORT INFORMATION
  Report Type: Spontaneous
  Country: GB (occurrence: GB)
  Receive Date: 20140613
  Receipt Date: 20140613
  Transmission Date: 20141212
  Serious: Yes (Hospitalization, Disabling)
  Sender: FDA-Public Use
  Company Number: GB-WATSON-2014-12415

PATIENT
  Age: 73 Year
  Sex: Female
  Weight: 70 kg

DRUGS (5)
  1. RISPERIDONE (UNKNOWN) [Suspect]
     Indication: AGGRESSION
     Dosage: 3 MG, DAILY - 1MG IN THE MORNING, 2MG AT NIGHT
     Route: 048
     Dates: start: 201307
  2. BUTRANS                            /00444001/ [Suspect]
     Indication: BACK PAIN
     Dosage: 10 ?G PER HOUR
     Route: 062
     Dates: start: 20140508, end: 20140518
  3. LORAZEPAM [Concomitant]
     Indication: PRODUCT USED FOR UNKNOWN INDICATION
     Dosage: UNK
     Route: 065
  4. PARACETAMOL [Concomitant]
     Indication: PRODUCT USED FOR UNKNOWN INDICATION
     Dosage: UNK
     Route: 065
  5. PREGABALIN [Concomitant]
     Indication: PRODUCT USED FOR UNKNOWN INDICATION
     Dosage: UNK
     Route: 065

REACTIONS (2)
  - Delirium [Not Recovered/Not Resolved]
  - Tremor [Not Recovered/Not Resolved]
